FAERS Safety Report 8553576-7 (Version None)
Quarter: 2012Q3

REPORT INFORMATION
  Report Type: 
  Country: None (occurrence: None)
  Receive Date: 20120731
  Receipt Date: 20120725
  Transmission Date: 20120928
  Serious: No
  Sender: FDA-Public Use
  Company Number: US-PFIZER INC-2012181489

PATIENT

DRUGS (1)
  1. GABAPENTIN [Suspect]
     Dosage: 400 MG, UNK
     Route: 048

REACTIONS (1)
  - MEDICATION RESIDUE [None]
